FAERS Safety Report 8052837-8 (Version None)
Quarter: 2012Q1

REPORT INFORMATION
  Report Type: 
  Country: None (occurrence: None)
  Receive Date: 20120118
  Receipt Date: 20120113
  Transmission Date: 20120608
  Serious: Yes (Hospitalization)
  Sender: FDA-Public Use
  Company Number: PHHY2011JP112750

PATIENT
  Age: 8 Year
  Sex: Male

DRUGS (4)
  1. SLM [Concomitant]
  2. ETHOSUXIMIDE [Concomitant]
  3. CARBAMAZEPINE [Suspect]
  4. VALPROIC ACID [Concomitant]
     Indication: PARTIAL SEIZURES

REACTIONS (1)
  - CATAPLEXY [None]
